FAERS Safety Report 16581428 (Version 2)
Quarter: 2019Q3

REPORT INFORMATION
  Report Type: Report from Study
  Country: US (occurrence: US)
  Receive Date: 20190716
  Receipt Date: 20190724
  Transmission Date: 20191004
  Serious: Yes (Hospitalization)
  Sender: FDA-Public Use
  Company Number: PHHO2019US007243

PATIENT
  Age: 60 Year
  Sex: Female
  Weight: 73.1 kg

DRUGS (2)
  1. KISQALI [Suspect]
     Active Substance: RIBOCICLIB
     Indication: TRIPLE NEGATIVE BREAST CANCER
     Dosage: 600 MG, QD (DAY 1 TO 21)
     Route: 048
     Dates: start: 20180809, end: 20190705
  2. BICALUTAMIDE. [Suspect]
     Active Substance: BICALUTAMIDE
     Indication: TRIPLE NEGATIVE BREAST CANCER
     Dosage: 150 MG, QD (DAY 1 TO 28)
     Route: 048
     Dates: start: 20180809, end: 20190705

REACTIONS (1)
  - Peripheral ischaemia [Recovered/Resolved with Sequelae]

NARRATIVE: CASE EVENT DATE: 20190705
